FAERS Safety Report 4509493-2 (Version None)
Quarter: 2004Q4

REPORT INFORMATION
  Report Type: 
  Country: None (occurrence: None)
  Receive Date: 20041119
  Receipt Date: 20041101
  Transmission Date: 20050328
  Serious: Yes (Hospitalization, Other)
  Sender: FDA-Public Use
  Company Number: US_0403101176

PATIENT
  Age: 55 Year
  Sex: Female

DRUGS (7)
  1. HUMULIN 70/30 [Suspect]
     Indication: DIABETES MELLITUS
     Dates: start: 19890101, end: 20040101
  2. HUMULIN R [Suspect]
     Indication: DIABETES MELLITUS
     Dates: start: 20040101
  3. LANTUS [Concomitant]
  4. BETAPACE [Concomitant]
  5. LASIX [Concomitant]
  6. LANOXIN (DIGOXIN STREULI) [Concomitant]
  7. LOPRESSOR [Concomitant]

REACTIONS (14)
  - ASTHENIA [None]
  - ATRIAL FIBRILLATION [None]
  - BLOOD GLUCOSE DECREASED [None]
  - BRONCHOSPASM [None]
  - CARDIAC FAILURE CONGESTIVE [None]
  - DIABETES MELLITUS INADEQUATE CONTROL [None]
  - HALLUCINATION [None]
  - HEAD INJURY [None]
  - HYPERHIDROSIS [None]
  - INFECTION [None]
  - MYOCARDIAL INFARCTION [None]
  - PNEUMONIA [None]
  - TREMOR [None]
  - VITREOUS FLOATERS [None]
